FAERS Safety Report 8330119-4 (Version None)
Quarter: 2012Q2

REPORT INFORMATION
  Report Type: 
  Country: None (occurrence: None)
  Receive Date: 20120502
  Receipt Date: 20120418
  Transmission Date: 20120825
  Serious: Yes (Hospitalization)
  Sender: FDA-Public Use
  Company Number: CN-JNJFOC-20111006303

PATIENT
  Sex: Female
  Weight: 60 kg

DRUGS (2)
  1. NIZORAL [Suspect]
     Indication: ONYCHOMYCOSIS
     Dosage: 26-JUL, FIRST BOX
     Route: 048
     Dates: start: 20110726
  2. NIZORAL [Suspect]
     Dosage: 2 BOXES IN AUG (YEAR UNSPECIFIED)
     Route: 048
     Dates: end: 20110906

REACTIONS (4)
  - CHOLECYSTITIS [None]
  - INTENTIONAL DRUG MISUSE [None]
  - GASTRITIS [None]
  - HEPATITIS [None]
